FAERS Safety Report 6391283-X (Version None)
Quarter: 2009Q4

REPORT INFORMATION
  Report Type: 
  Country: None (occurrence: None)
  Receive Date: 20091006
  Receipt Date: 20091006
  Transmission Date: 20100525
  Serious: Yes (Life-Threatening, Other)
  Sender: FDA-Public Use
  Company Number: None

PATIENT
  Age: 32 Year
  Sex: Female
  Weight: 54.4316 kg

DRUGS (4)
  1. PROZAC [Suspect]
     Indication: ANXIETY
     Dosage: 20MG DAILY PO
     Route: 048
     Dates: start: 20081018
  2. PROZAC [Suspect]
     Indication: DEPRESSION
     Dosage: 20MG DAILY PO
     Route: 048
     Dates: start: 20081018
  3. ZOLOFT [Suspect]
     Indication: ANXIETY
     Dosage: DAILY PO
     Route: 048
  4. ZOLOFT [Suspect]
     Indication: DEPRESSION
     Dosage: DAILY PO
     Route: 048

REACTIONS (13)
  - ABNORMAL BEHAVIOUR [None]
  - AGGRESSION [None]
  - AGITATION [None]
  - DEATH OF RELATIVE [None]
  - DRUG EFFECT DECREASED [None]
  - FLAT AFFECT [None]
  - HIGH RISK SEXUAL BEHAVIOUR [None]
  - IMPRISONMENT [None]
  - LIBIDO DECREASED [None]
  - LIBIDO INCREASED [None]
  - PERSONALITY CHANGE [None]
  - SEXUAL ABUSE [None]
  - SUICIDAL IDEATION [None]
